FAERS Safety Report 8207728-6 (Version None)
Quarter: 2012Q1

REPORT INFORMATION
  Report Type: 
  Country: None (occurrence: None)
  Receive Date: 20120314
  Receipt Date: 20120309
  Transmission Date: 20120608
  Serious: Yes (Life-Threatening, Other)
  Sender: FDA-Public Use
  Company Number: CELGENEUS-087-21880-10082443

PATIENT
  Sex: Male
  Weight: 46.1 kg

DRUGS (20)
  1. REVLIMID [Suspect]
     Dosage: 15 MILLIGRAM
     Route: 048
     Dates: start: 20101105, end: 20101125
  2. DEXAMETHASONE ACETATE [Suspect]
     Indication: MULTIPLE MYELOMA
     Dosage: 40 MILLIGRAM
     Route: 048
     Dates: start: 20100804, end: 20100818
  3. DEXAMETHASONE ACETATE [Suspect]
     Dosage: 40 MILLIGRAM
     Route: 048
     Dates: start: 20101105, end: 20101108
  4. DEXAMETHASONE ACETATE [Suspect]
     Dosage: 40 MILLIGRAM
     Route: 048
     Dates: start: 20101119, end: 20101122
  5. REVLIMID [Suspect]
     Dosage: 10 MILLIGRAM
     Route: 048
     Dates: start: 20100924, end: 20101014
  6. DEXAMETHASONE ACETATE [Suspect]
     Dosage: 40 MILLIGRAM
     Route: 048
     Dates: start: 20100924, end: 20101015
  7. CEFAZOLIN SODIUM [Concomitant]
     Dosage: 3 TABLET
     Route: 048
     Dates: start: 20100423, end: 20100816
  8. ALBUMIN TANNATE [Concomitant]
     Dosage: 3 GRAM
     Route: 048
     Dates: start: 20100913, end: 20100930
  9. CELECOXIB [Concomitant]
     Indication: MULTIPLE MYELOMA
     Dosage: 200 MILLIGRAM
     Route: 048
     Dates: start: 20101210, end: 20101213
  10. REVLIMID [Suspect]
     Indication: MULTIPLE MYELOMA
     Dosage: 10 MILLIGRAM
     Route: 048
     Dates: start: 20100804, end: 20100824
  11. ANTIBIOTICS [Concomitant]
     Indication: SEPSIS
     Route: 065
     Dates: start: 20101221
  12. DEXAMETHASONE ACETATE [Suspect]
     Dosage: 20 MILLIGRAM
     Route: 048
     Dates: start: 20101214, end: 20101217
  13. POLYFUL [Concomitant]
     Dosage: 3 PACKS
     Route: 048
     Dates: start: 20100817, end: 20100902
  14. CEFAZOLIN SODIUM [Concomitant]
     Dosage: 3 TABLET
     Route: 048
     Dates: start: 20100901, end: 20100930
  15. REVLIMID [Suspect]
     Dosage: 15 MILLIGRAM
     Route: 048
     Dates: start: 20101214, end: 20101220
  16. MUCOSTA [Concomitant]
     Indication: PROPHYLAXIS
     Dosage: 300 MILLIGRAM
     Route: 048
     Dates: start: 20081101, end: 20100916
  17. ALLOPURINOL [Concomitant]
     Dosage: 300 MILLIGRAM
     Route: 048
     Dates: start: 20081101, end: 20100916
  18. RABEPRAZOLE SODIUM [Concomitant]
     Indication: PROPHYLAXIS
     Dosage: 10 MILLIGRAM
     Route: 048
     Dates: start: 20081101, end: 20100916
  19. BLOSTAR M [Concomitant]
     Indication: PROPHYLAXIS
     Dosage: 40 MILLIGRAM
     Route: 048
     Dates: start: 20101029, end: 20101213
  20. NEOSTELIN GREEN [Concomitant]
     Dosage: AS MUCH AS SUFFICES
     Route: 065
     Dates: start: 20101112, end: 20101213

REACTIONS (10)
  - DYSPHONIA [None]
  - ALOPECIA [None]
  - DYSGEUSIA [None]
  - FEBRILE NEUTROPENIA [None]
  - BLOOD CREATININE INCREASED [None]
  - PRURITUS [None]
  - THROMBOCYTOPENIA [None]
  - ANAEMIA [None]
  - NEUTROPHIL COUNT DECREASED [None]
  - SEPSIS [None]
